FAERS Safety Report 9904804 (Version 3)
Quarter: 2014Q1

REPORT INFORMATION
  Report Type: Spontaneous
  Country: IT (occurrence: None)
  Receive Date: 20140211
  Receipt Date: 20140311
  Transmission Date: 20141002
  Serious: Yes (Other)
  Sender: FDA-Public Use
  Company Number: AUR-APL-2014-01433

PATIENT
  Sex: 0
  Weight: 2.96 kg

DRUGS (4)
  1. ESCITALOPRAM (ESCITALOPRAM) [Suspect]
     Indication: MAJOR DEPRESSION
     Route: 064
  2. LORAZEPAM (LORAZEPAM) [Suspect]
     Indication: PRODUCT USED FOR UNKNOWN INDICATION
     Route: 064
  3. PAROXETINE [Suspect]
     Indication: MAJOR DEPRESSION
     Route: 064
  4. CLONAZEPAM (CLONAZEPAM) (CLONAZEPAM) [Suspect]
     Indication: MAJOR DEPRESSION
     Route: 064

REACTIONS (8)
  - Withdrawal syndrome [None]
  - Hypoglycaemia [None]
  - Lethargy [None]
  - Hypotonia [None]
  - Hyporeflexia [None]
  - Anxiety [None]
  - No therapeutic response [None]
  - Exposure during pregnancy [None]
